FAERS Safety Report 12577389 (Version 2)
Quarter: 2016Q3

REPORT INFORMATION
  Report Type: Spontaneous
  Country: FR (occurrence: FR)
  Receive Date: 20160720
  Receipt Date: 20160818
  Transmission Date: 20161109
  Serious: Yes (Death, Hospitalization, Other)
  Sender: FDA-Public Use
  Company Number: FR-ASTRAZENECA-2016SE75788

PATIENT
  Age: 29977 Day
  Sex: Male

DRUGS (15)
  1. OXYCONTIN [Suspect]
     Active Substance: OXYCODONE HYDROCHLORIDE
     Indication: PAIN
     Route: 048
     Dates: start: 20160526
  2. ESOMEPRAZOLE EG [Suspect]
     Active Substance: ESOMEPRAZOLE
     Indication: GASTROOESOPHAGEAL REFLUX DISEASE
     Route: 048
     Dates: end: 20160606
  3. DIFFU K [Suspect]
     Active Substance: POTASSIUM CHLORIDE
     Indication: HYPOKALAEMIA
     Route: 048
     Dates: start: 20160528, end: 20160606
  4. LACTULOSE. [Suspect]
     Active Substance: LACTULOSE
     Indication: CONSTIPATION
     Route: 048
     Dates: start: 20160528
  5. KARDEGIC [Suspect]
     Active Substance: ASPIRIN LYSINE
     Indication: CARDIOVASCULAR EVENT PROPHYLAXIS
     Route: 048
  6. JANUVIA [Suspect]
     Active Substance: SITAGLIPTIN PHOSPHATE
     Indication: DIABETES MELLITUS
     Route: 048
     Dates: end: 20160606
  7. CASODEX [Suspect]
     Active Substance: BICALUTAMIDE
     Indication: PROSTATE CANCER
     Route: 048
     Dates: start: 20160210
  8. NICORANDIL [Suspect]
     Active Substance: NICORANDIL
     Indication: ANGINA UNSTABLE
     Route: 048
  9. PREDNISONE. [Suspect]
     Active Substance: PREDNISONE
     Indication: PRODUCT USED FOR UNKNOWN INDICATION
     Route: 048
     Dates: end: 20160606
  10. XTANDI [Suspect]
     Active Substance: ENZALUTAMIDE
     Indication: PROSTATE CANCER
     Dosage: 160.0MG UNKNOWN
     Route: 048
     Dates: start: 20160524
  11. OXYNORMORO [Suspect]
     Active Substance: OXYCODONE
     Indication: PAIN
     Dosage: 5 MG, IF NEEDED
     Route: 048
     Dates: start: 20160526
  12. BISOPROLOL EG [Suspect]
     Active Substance: BISOPROLOL
     Indication: HYPERTENSION
     Route: 048
     Dates: start: 20151127
  13. NORMACOL [Suspect]
     Active Substance: KARAYA GUM
     Indication: CONSTIPATION
     Dosage: IF NEED
     Route: 054
     Dates: start: 20160507
  14. DOLIPRANE [Suspect]
     Active Substance: ACETAMINOPHEN
     Indication: PAIN
     Dosage: 1 G, IF NEED
     Route: 048
  15. PRAVASTATINE EG [Suspect]
     Active Substance: PRAVASTATIN SODIUM
     Indication: HYPERCHOLESTEROLAEMIA
     Route: 048
     Dates: end: 20160606

REACTIONS (7)
  - Renal failure [Unknown]
  - Abdominal pain [Unknown]
  - Hepatorenal syndrome [Unknown]
  - Calculus urinary [Unknown]
  - Cholestasis [Unknown]
  - Hepatic function abnormal [Fatal]
  - Hepatic encephalopathy [Unknown]

NARRATIVE: CASE EVENT DATE: 20160521
